FAERS Safety Report 11227252 (Version 1)
Quarter: 2015Q2

REPORT INFORMATION
  Report Type: Report from Study
  Country: BR (occurrence: BR)
  Receive Date: 20150630
  Receipt Date: 20150630
  Transmission Date: 20150821
  Serious: Yes (Life-Threatening, Other)
  Sender: FDA-Public Use
  Company Number: PHHY2015BR018376

PATIENT
  Sex: Female
  Weight: 81 kg

DRUGS (2)
  1. ACLASTA [Suspect]
     Active Substance: ZOLEDRONIC ACID
     Indication: OSTEOPOROSIS
     Dosage: 1 APPLICATION, YEARLY
     Route: 042
     Dates: start: 20140113, end: 20140113
  2. CALCIUM +D3 [Suspect]
     Active Substance: CALCIUM\CHOLECALCIFEROL
     Indication: OSTEOPOROSIS
     Dosage: 1 DF, QD
     Route: 065
     Dates: start: 201401, end: 201404

REACTIONS (6)
  - Paraesthesia [Unknown]
  - Osteoporosis [Unknown]
  - Nervousness [Unknown]
  - Apparent death [Unknown]
  - Drug ineffective [Unknown]
  - Pain [Unknown]
